FAERS Safety Report 10186344 (Version 1)
Quarter: 2014Q2

REPORT INFORMATION
  Report Type: Spontaneous
  Country: US (occurrence: US)
  Receive Date: 20140521
  Receipt Date: 20140521
  Transmission Date: 20141212
  Serious: No
  Sender: FDA-Public Use
  Company Number: US-ASTRAZENECA-2014SE10540

PATIENT
  Sex: Male

DRUGS (2)
  1. PULMICORT FLEXHALER [Suspect]
     Route: 055
     Dates: end: 201402
  2. PULMICORT FLEXHALER [Suspect]
     Route: 055
     Dates: start: 201402

REACTIONS (2)
  - Visual impairment [Recovering/Resolving]
  - Aura [Recovering/Resolving]
